FAERS Safety Report 7141380-6 (Version None)
Quarter: 2010Q4

REPORT INFORMATION
  Report Type: 
  Country: None (occurrence: None)
  Receive Date: 20101207
  Receipt Date: 20101123
  Transmission Date: 20110411
  Serious: Yes (Hospitalization)
  Sender: FDA-Public Use
  Company Number: DE-ELI_LILLY_AND_COMPANY-DE201011004209

PATIENT
  Sex: Male
  Weight: 93 kg

DRUGS (24)
  1. GEMCITABINE HCL [Suspect]
     Indication: NON-SMALL CELL LUNG CANCER
     Dosage: 2787 MG, UNK
     Dates: start: 20100907, end: 20101026
  2. GEMCITABINE HCL [Suspect]
     Dates: start: 20101118
  3. CISPLATIN [Suspect]
     Indication: NON-SMALL CELL LUNG CANCER
     Dosage: 167 MG, UNK
     Dates: start: 20100907, end: 20101019
  4. CISPLATIN [Suspect]
     Dates: start: 20101118
  5. PANTOPRAZOLE SODIUM [Concomitant]
     Indication: PROPHYLAXIS AGAINST GASTROINTESTINAL ULCER
     Dosage: 40 MG, UNK
     Dates: start: 20100120
  6. METAMIZOL /06276702/ [Concomitant]
     Indication: TUMOUR PAIN
     Dosage: 160 D/F, UNK
     Dates: start: 20100123
  7. SALMETEROL [Concomitant]
     Indication: CHRONIC OBSTRUCTIVE PULMONARY DISEASE
     Dates: start: 20100123
  8. FLUTICASONE PROPIONATE [Concomitant]
     Indication: CHRONIC OBSTRUCTIVE PULMONARY DISEASE
     Dates: start: 20100123
  9. ACETYLDIGOXIN [Concomitant]
     Indication: TACHYARRHYTHMIA
     Dates: start: 20100123
  10. DIAZEPAM [Concomitant]
     Indication: INSOMNIA
     Dosage: 10 MG, UNK
     Dates: start: 20100123
  11. METOPROLOL SUCCINATE [Concomitant]
     Indication: HYPERTENSION
     Dosage: 47.5 MG, UNK
     Dates: start: 20100123
  12. THEOPHYLLINE [Concomitant]
     Indication: CHRONIC OBSTRUCTIVE PULMONARY DISEASE
     Dosage: 200 MG, UNK
     Dates: start: 20100123
  13. FENTANYL [Concomitant]
     Indication: TUMOUR PAIN
     Dosage: 75 MG, UNK
     Dates: start: 20100801
  14. RAMIPRIL [Concomitant]
     Indication: HYPERTENSION
     Dosage: 2.5 MG, UNK
     Dates: start: 20100216
  15. ACETYLCYSTEINE [Concomitant]
     Indication: CHRONIC OBSTRUCTIVE PULMONARY DISEASE
     Dosage: 600 MG, UNK
     Dates: start: 20100123
  16. SPIRIVA [Concomitant]
     Indication: CHRONIC OBSTRUCTIVE PULMONARY DISEASE
     Dates: start: 20100123
  17. FENOFIBRAT [Concomitant]
     Indication: HYPERCHOLESTEROLAEMIA
     Dosage: 145 MG, UNK
     Dates: start: 20100501
  18. TINZAPARIN SODIUM [Concomitant]
     Dosage: 3500 D/F, UNK
     Dates: start: 20100830
  19. METOCLOPRAMID [Concomitant]
     Indication: PROPHYLAXIS
     Dosage: 80 MG, UNK
     Dates: start: 20100907
  20. OXAZEPAM [Concomitant]
     Indication: INSOMNIA
     Dosage: 10 MG, UNK
     Dates: start: 20100907
  21. FENTANYL CITRATE [Concomitant]
     Indication: PAIN
     Dates: start: 20100721
  22. GLUCOSE [Concomitant]
     Indication: CHEMOTHERAPY
     Dosage: 1000 ML, UNK
     Dates: start: 20101108, end: 20101108
  23. FUROSEMIDE [Concomitant]
     Indication: FLUID RETENTION
     Dosage: 60 MG, UNK
     Route: 042
     Dates: start: 20101109, end: 20101109
  24. DIHYDROCODEINE [Concomitant]
     Indication: COUGH
     Dates: start: 20101108, end: 20101109

REACTIONS (1)
  - BRONCHITIS [None]
